FAERS Safety Report 24297010 (Version 1)
Quarter: 2024Q3

REPORT INFORMATION
  Report Type: Other
  Country: GB (occurrence: GB)
  Receive Date: 20240909
  Receipt Date: 20240909
  Transmission Date: 20241017
  Serious: Yes (Other)
  Sender: ASPEN
  Company Number: None

PATIENT

DRUGS (16)
  1. DEXAMETHASONE [Suspect]
     Active Substance: DEXAMETHASONE
     Indication: Product used for unknown indication
     Dosage: 8MG STAT
     Route: 065
  2. TRAMADOL [Concomitant]
     Active Substance: TRAMADOL\TRAMADOL HYDROCHLORIDE
     Indication: Product used for unknown indication
     Dosage: TRAMADOL 50 MG CAPSULES TWO TO BE TAKEN INITIALLY THEN ONE OR TWO TO BE TAKEN EVERYFOUR TO SIX HOURS
     Route: 065
  3. IRBESARTAN [Concomitant]
     Active Substance: IRBESARTAN
     Indication: Product used for unknown indication
     Dosage: 75 MG TABLETS ONE TO BE TAKEN EACH DAY
     Route: 065
  4. GABAPENTIN [Concomitant]
     Active Substance: GABAPENTIN
     Indication: Product used for unknown indication
     Dosage: GABAPENTIN 600 MG TABLETS ONE TO BE TAKEN THREE TIMES A DAY
     Route: 065
  5. GABAPENTIN [Concomitant]
     Active Substance: GABAPENTIN
     Dosage: GABAPENTIN 100 MG CAPSULES TWO CAPSULES THREE TIME A DAY- IN ADDITION TO THE 600 MGCAPSULE(TOTAL DOS
     Route: 065
  6. BETAMETHASONE [Concomitant]
     Active Substance: BETAMETHASONE
     Indication: Product used for unknown indication
     Dosage: APPLY THINLY TWICE A DAY 100 GRAM- NOT USING
     Route: 065
  7. ALLOPURINOL [Concomitant]
     Active Substance: ALLOPURINOL
     Indication: Product used for unknown indication
     Dosage: 100 MG TABLETS ONE TO BE TAKEN TWICE A DAY
     Route: 065
  8. ACETAMINOPHEN [Concomitant]
     Active Substance: ACETAMINOPHEN
     Indication: Product used for unknown indication
     Dosage: PARACETAMOL 500 MG TABLETS TWO TO BE TAKEN EVERY 4-6 HOURS UP TO FOUR TIMES A DAYPRN 100 TABLET- STI
     Route: 065
  9. METFORMIN [Concomitant]
     Active Substance: METFORMIN HYDROCHLORIDE
     Indication: Product used for unknown indication
     Dosage: 500 MG MODIFIED-RELEASE TABLETS ONE TWICE A DAY - HELD ACUTE ILLNESS
     Route: 065
  10. BISOPROLOL [Concomitant]
     Active Substance: BISOPROLOL\BISOPROLOL FUMARATE
     Indication: Product used for unknown indication
     Dosage: TAKE ONE EACH DAY IN THE MORNING
     Route: 065
  11. Spikevax XBB.1.5 [Concomitant]
     Indication: Product used for unknown indication
     Dosage: SPIKEVAX XBB.1.5 COVID-19 MRNA VACCINE 0.1 MG / 1 ML DISPERSION FOR INJECTIONMULTIDOSE VIALS (MODERN
     Route: 065
  12. INSULIN ASPART [Concomitant]
     Active Substance: INSULIN ASPART
     Indication: Product used for unknown indication
     Dosage: NOVOMIX 30 FLEXPEN 100 UNITS / ML SUSPENSION FOR INJECTION 3 ML PRE-FILLED PENS ASDIRECTED 12 UNITS
     Route: 065
  13. DICLOFENAC DIETHYLAMINE [Concomitant]
     Active Substance: DICLOFENAC DIETHYLAMINE
     Indication: Product used for unknown indication
     Dosage: DICLOFENAC DIETHYLAMMONIUM 1.16% GEL APPLY THREE OR FOUR TIMES A DAY 100 GRAM- NOTUSING, NOT WORKING
     Route: 065
  14. AVEENO [Concomitant]
     Active Substance: DIMETHICONE\HOMOSALATE\OCTINOXATE\OCTISALATE\TITANIUM DIOXIDE
     Indication: Product used for unknown indication
     Dosage: AVEENO CREAM APPLY TWICE A DAY AFTER EACH STEROID APPLICATION; CAN ALSO BE USED AT OTHERTIMES DURING
     Route: 065
  15. QUININE [Concomitant]
     Active Substance: QUININE
     Indication: Product used for unknown indication
     Dosage: TAKE ONE AT NIGHT
     Route: 065
  16. PRAVASTATIN [Concomitant]
     Active Substance: PRAVASTATIN
     Indication: Product used for unknown indication
     Dosage: TAKE ONE AT NIGHT
     Route: 065

REACTIONS (1)
  - Psychotic disorder [Unknown]
